FAERS Safety Report 4821892-8 (Version None)
Quarter: 2005Q4

REPORT INFORMATION
  Report Type: 
  Country: None (occurrence: None)
  Receive Date: 20051107
  Receipt Date: 20051026
  Transmission Date: 20060501
  Serious: Yes (Hospitalization)
  Sender: FDA-Public Use
  Company Number: FR-ROCHE-422505

PATIENT
  Age: 29 Year
  Sex: Male
  Weight: 76.6 kg

DRUGS (11)
  1. DACLIZUMAB [Suspect]
     Route: 042
     Dates: start: 20050623
  2. DACLIZUMAB [Suspect]
     Route: 042
     Dates: start: 20050707
  3. MYCOPHENOLATE MOFETIL [Suspect]
     Route: 048
     Dates: start: 20050623
  4. CYCLOSPORINE [Suspect]
     Route: 048
     Dates: start: 20050625, end: 20050802
  5. CYCLOSPORINE [Suspect]
     Route: 048
     Dates: start: 20050803
  6. CORTANCYL [Suspect]
     Route: 048
     Dates: start: 20050626
  7. BACTRIM [Concomitant]
     Dates: start: 20050623
  8. MOPRAL [Concomitant]
     Dates: start: 20050623
  9. AMLOR [Concomitant]
     Dates: start: 20050624
  10. HYPERIUM [Concomitant]
     Dates: start: 20050624
  11. PHOSPHONEUROS [Concomitant]
     Dates: start: 20050624

REACTIONS (3)
  - BASAL CELL CARCINOMA [None]
  - ERYTHEMA INFECTIOSUM [None]
  - HYPERPARATHYROIDISM TERTIARY [None]
